FAERS Safety Report 10932659 (Version 1)
Quarter: 2015Q1

REPORT INFORMATION
  Report Type: Spontaneous
  Country: US (occurrence: None)
  Receive Date: 20150318
  Receipt Date: 20150318
  Transmission Date: 20150721
  Serious: Yes (Death)
  Sender: FDA-Public Use
  Company Number: INT_00716_2015

PATIENT

DRUGS (4)
  1. 5-FLUOROURACIL [Suspect]
     Active Substance: FLUOROURACIL
     Indication: OESOPHAGEAL CARCINOMA
     Dosage: 650 MG/M2, CONTINUOUS INFUSION ON DAYS 1-5 AND 29-33 FOR 2 CYCLES, INTRAVENOUS (NOT OTHERWISE SPECIFIED)?
     Route: 042
  2. CHEMORADIATION [Suspect]
     Active Substance: UNSPECIFIED INGREDIENT
     Indication: OESOPHAGEAL CARCINOMA
     Dosage: 50.4 GY (1.8 GY/FRACTION)
  3. CISPLATIN (HQ SPECIALTY) [Suspect]
     Active Substance: CISPLATIN
     Indication: OESOPHAGEAL CARCINOMA
     Dosage: 15 MG/M2, 1 HOUR INFUSION ON DAYS 1-5 AND 29-33 FOR 2 CYCLES, INTRAVENOUS (NOT OTHERWISE SPECIFIED)
     Route: 042
  4. PACLITAXEL (HQ SPECIALTY) [Suspect]
     Active Substance: PACLITAXEL
     Indication: OESOPHAGEAL CARCINOMA
     Dosage: 200 MG/M2, 2 HOUR INFUSION ON DAYS 1 AND 29 FOR 2 CYCLES, INTRAVENOUS (NOT OTHERWISE SPECIFIED)
     Route: 042

REACTIONS (1)
  - Gastrointestinal anastomotic leak [None]
